FAERS Safety Report 9727648 (Version 1)
Quarter: 2013Q4

REPORT INFORMATION
  Report Type: Spontaneous
  Country: AU (occurrence: AU)
  Receive Date: 20131203
  Receipt Date: 20131203
  Transmission Date: 20140711
  Serious: Yes (Other)
  Sender: FDA-Public Use
  Company Number: PHHY2013AU140452

PATIENT
  Sex: 0

DRUGS (6)
  1. CLOZAPINE [Suspect]
     Dosage: UNK
  2. VALPROATE SODIUM [Concomitant]
     Dosage: UNK
  3. VERAPAMIL HYDROCHLOIRDE [Concomitant]
     Dosage: UNK
  4. FLECAINIDE ACETATE [Concomitant]
     Dosage: UNK
  5. ARIPIPRAZOLE [Concomitant]
     Dosage: UNK
  6. ESCITALOPRAM [Concomitant]
     Dosage: UNK

REACTIONS (4)
  - Altered state of consciousness [Unknown]
  - Blood creatine phosphokinase increased [Unknown]
  - Pyrexia [Unknown]
  - Tachycardia [Unknown]
